FAERS Safety Report 10172256 (Version 2)
Quarter: 2014Q2

REPORT INFORMATION
  Report Type: Report from Study
  Country: NO (occurrence: NO)
  Receive Date: 20140515
  Receipt Date: 20140522
  Transmission Date: 20141212
  Serious: Yes (Other)
  Sender: FDA-Public Use
  Company Number: NO-BIOGENIDEC-2014BI042989

PATIENT
  Age: 56 Year
  Sex: Female

DRUGS (1)
  1. TYSABRI [Suspect]
     Indication: RELAPSING-REMITTING MULTIPLE SCLEROSIS
     Route: 042
     Dates: start: 20091228

REACTIONS (1)
  - Intervertebral disc protrusion [Recovered/Resolved]
